FAERS Safety Report 4725248-8 (Version None)
Quarter: 2005Q3

REPORT INFORMATION
  Report Type: 
  Country: None (occurrence: None)
  Receive Date: 20050725
  Receipt Date: 20050711
  Transmission Date: 20060218
  Serious: Yes (Other)
  Sender: FDA-Public Use
  Company Number: 2005101740

PATIENT
  Sex: Female

DRUGS (5)
  1. CELEBREX [Suspect]
     Indication: RHEUMATOID ARTHRITIS
     Dosage: 400 MG (200 MG, 2 IN 1 D)
     Dates: end: 20050101
  2. EVISTA [Concomitant]
  3. PREDNISONE [Concomitant]
  4. TEMAZEPAM [Concomitant]
  5. FOSAMAX [Concomitant]

REACTIONS (6)
  - BLINDNESS UNILATERAL [None]
  - EYE DISORDER [None]
  - FRACTURED SACRUM [None]
  - OCULAR VASCULAR DISORDER [None]
  - READING DISORDER [None]
  - VISUAL DISTURBANCE [None]
